FAERS Safety Report 5849090-X (Version None)
Quarter: 2008Q3

REPORT INFORMATION
  Report Type: 
  Country: None (occurrence: None)
  Receive Date: 20080819
  Receipt Date: 20080812
  Transmission Date: 20090109
  Serious: Yes (Other)
  Sender: FDA-Public Use
  Company Number: PHHY2008DE17877

PATIENT
  Sex: Female

DRUGS (6)
  1. ACLASTA [Suspect]
     Indication: OSTEOPOROSIS
     Dosage: 1 DF, ONCE
     Route: 042
     Dates: start: 20071218
  2. BLOPRESS [Concomitant]
     Dosage: 2-4 MG PER DAY
     Route: 048
  3. INEGY [Concomitant]
     Dosage: 1 DF, ONCE/SINGLE
     Route: 048
  4. VIGANTOLETTEN [Concomitant]
     Dosage: 1 DF, ONCE/SINGLE
     Route: 048
  5. JODID [Concomitant]
     Dosage: 1 DF, ONCE/SINGLE
     Route: 048
  6. ARANESP [Concomitant]
     Dosage: 150 MICRO GRAMS, 1 DAY
     Dates: start: 20080319

REACTIONS (3)
  - BLOOD CREATININE INCREASED [None]
  - HAEMATURIA [None]
  - PROTEINURIA [None]
